FAERS Safety Report 9031073 (Version 1)
Quarter: 2013Q1

REPORT INFORMATION
  Report Type: Spontaneous
  Country: BR (occurrence: BR)
  Receive Date: 20130123
  Receipt Date: 20130123
  Transmission Date: 20140127
  Serious: Yes (Other)
  Sender: FDA-Public Use
  Company Number: BR-PFIZER INC-2013026257

PATIENT
  Age: 79 Year
  Sex: Female

DRUGS (5)
  1. LIPITOR [Suspect]
     Dosage: UNK
  2. ASPIRINA [Concomitant]
  3. CARDIZEM [Concomitant]
  4. FRONTAL [Concomitant]
  5. PANTOPRAZOLE [Concomitant]

REACTIONS (3)
  - Infarction [Unknown]
  - Coronary artery disease [Unknown]
  - Surgery [Unknown]
